FAERS Safety Report 9753903 (Version 3)
Quarter: 2015Q3

REPORT INFORMATION
  Report Type: Spontaneous
  Country: US (occurrence: US)
  Receive Date: 20131213
  Receipt Date: 20150805
  Transmission Date: 20151125
  Serious: No
  Sender: FDA-Public Use
  Company Number: US-GILEAD-2010-0027467

PATIENT
  Age: 57 Year
  Sex: Male
  Weight: 99.79 kg

DRUGS (16)
  1. BACTRIM DS [Concomitant]
     Active Substance: SULFAMETHOXAZOLE\TRIMETHOPRIM
  2. CIPRO [Concomitant]
     Active Substance: CIPROFLOXACIN HYDROCHLORIDE
  3. REGLAN [Concomitant]
     Active Substance: METOCLOPRAMIDE HYDROCHLORIDE
  4. MEGACE ES [Concomitant]
     Active Substance: MEGESTROL ACETATE
  5. NYSTATIN. [Concomitant]
     Active Substance: NYSTATIN
  6. LETAIRIS [Suspect]
     Active Substance: AMBRISENTAN
     Indication: PULMONARY ARTERIAL HYPERTENSION
     Route: 048
     Dates: start: 20090521, end: 20100126
  7. ALLOPURINOL. [Concomitant]
     Active Substance: ALLOPURINOL
  8. CELLCEPT [Concomitant]
     Active Substance: MYCOPHENOLATE MOFETIL\MYCOPHENOLATE MOFETIL HYDROCHLORIDE
  9. DILTIAZEM [Concomitant]
     Active Substance: DILTIAZEM
  10. PREDNISONE. [Concomitant]
     Active Substance: PREDNISONE
  11. ZYVOX [Concomitant]
     Active Substance: LINEZOLID
  12. DIGOXIN. [Concomitant]
     Active Substance: DIGOXIN
  13. NEXIUM [Concomitant]
     Active Substance: ESOMEPRAZOLE MAGNESIUM
  14. MAG OXIDE [Concomitant]
     Active Substance: MAGNESIUM OXIDE
  15. REVATIO [Concomitant]
     Active Substance: SILDENAFIL CITRATE
  16. FLOMAX [Concomitant]
     Active Substance: TAMSULOSIN HYDROCHLORIDE

REACTIONS (1)
  - Liver function test abnormal [Unknown]

NARRATIVE: CASE EVENT DATE: 20100121
